FAERS Safety Report 12248621 (Version 1)
Quarter: 2016Q2

REPORT INFORMATION
  Report Type: Spontaneous
  Country: US (occurrence: US)
  Receive Date: 20160408
  Receipt Date: 20160408
  Transmission Date: 20160815
  Serious: No
  Sender: FDA-Public Use
  Company Number: US-PFIZER INC-2016177817

PATIENT

DRUGS (1)
  1. IBRANCE [Suspect]
     Active Substance: PALBOCICLIB
     Dosage: UNK

REACTIONS (10)
  - Bone pain [Unknown]
  - Depression [Unknown]
  - Asthenia [Unknown]
  - Myalgia [Unknown]
  - Alopecia [Unknown]
  - Headache [Unknown]
  - Arthralgia [Unknown]
  - Anxiety [Unknown]
  - Hot flush [Unknown]
  - Libido disorder [Unknown]
